FAERS Safety Report 14013075 (Version 2)
Quarter: 2017Q4

REPORT INFORMATION
  Report Type: Spontaneous
  Country: US (occurrence: US)
  Receive Date: 20170926
  Receipt Date: 20171108
  Transmission Date: 20180321
  Serious: No
  Sender: FDA-Public Use
  Company Number: US-PFIZER INC-2017413205

PATIENT
  Age: 49 Year
  Sex: Female
  Weight: 66.22 kg

DRUGS (11)
  1. VITAMIN B12 [Concomitant]
     Active Substance: CYANOCOBALAMIN
     Indication: VITAMIN SUPPLEMENTATION
     Dosage: 2500 MCG, SUBLINGUAL TABLET, ONCE DAILY
     Route: 060
  2. VITAMIN D3 [Concomitant]
     Active Substance: CHOLECALCIFEROL
     Indication: VITAMIN SUPPLEMENTATION
     Dosage: 1000 IU, 1X/DAY
  3. FLUVOXAMINE [Concomitant]
     Active Substance: FLUVOXAMINE
     Indication: ANTIDEPRESSANT THERAPY
     Dosage: 50 MG, 2X/DAY
  4. METHADONE [Concomitant]
     Active Substance: METHADONE HYDROCHLORIDE
     Indication: NEUROPATHY PERIPHERAL
     Dosage: 10 MG, UNK (TAKE ONE TABLET BY MOUTH HALF A TABLET IN THE AFTERNOON AND ONE TABLET IN THE AFTERNOON)
     Route: 048
  5. WARFARIN [Concomitant]
     Active Substance: WARFARIN
     Indication: CEREBROVASCULAR ACCIDENT
     Dosage: UNK
  6. BIOTIN [Concomitant]
     Active Substance: BIOTIN
     Dosage: 5000MCG, CAPSULE, ONCE DAILY
  7. LISINOPRIL/HCTZ [Concomitant]
     Active Substance: HYDROCHLOROTHIAZIDE\LISINOPRIL
     Indication: BLOOD PRESSURE ABNORMAL
     Dosage: [HYDROCHLOROTHIAZIDE 12.5]/[LISINOPRIL 10], ONCE DAILY, TABLET
  8. CLONIDINE. [Concomitant]
     Active Substance: CLONIDINE
     Indication: BLOOD PRESSURE ABNORMAL
     Dosage: 0.1 MG, 2X/DAY
  9. WARFARIN [Concomitant]
     Active Substance: WARFARIN
     Indication: THROMBOSIS
  10. LYRICA [Suspect]
     Active Substance: PREGABALIN
     Dosage: 900 MG, DAILY
  11. AMITRIPTYLINE [Concomitant]
     Active Substance: AMITRIPTYLINE
     Dosage: 25MG, TABLET, ONE AT NIGHT

REACTIONS (3)
  - Prescribed overdose [Unknown]
  - Somnolence [Unknown]
  - Intentional product use issue [Unknown]
